FAERS Safety Report 8465851-5 (Version None)
Quarter: 2012Q2

REPORT INFORMATION
  Report Type: 
  Country: None (occurrence: None)
  Receive Date: 20120626
  Receipt Date: 20120621
  Transmission Date: 20120825
  Serious: Yes (Death, Hospitalization, Other)
  Sender: FDA-Public Use
  Company Number: US-AMGEN-QUU437732

PATIENT
  Age: 75 Year
  Sex: Male
  Weight: 61 kg

DRUGS (2)
  1. EPOGEN [Suspect]
     Indication: DIALYSIS
     Dosage: 8000 IU, UNK
     Route: 058
     Dates: start: 20010101, end: 20120101
  2. EPOGEN [Suspect]
     Dates: start: 20020101

REACTIONS (11)
  - DYSPNOEA [None]
  - CONVULSION [None]
  - CEREBROVASCULAR ACCIDENT [None]
  - MYOCARDIAL INFARCTION [None]
  - FALL [None]
  - HOSPITALISATION [None]
  - HIP FRACTURE [None]
  - DEATH [None]
  - THERAPEUTIC RESPONSE DECREASED [None]
  - HAEMOGLOBIN DECREASED [None]
  - HYPERHIDROSIS [None]
